FAERS Safety Report 4736624-1 (Version None)
Quarter: 2005Q3

REPORT INFORMATION
  Report Type: 
  Country: None (occurrence: None)
  Receive Date: 20050808
  Receipt Date: 20050210
  Transmission Date: 20060218
  Serious: Yes (Death, Other)
  Sender: FDA-Public Use
  Company Number: 200510515JP

PATIENT
  Age: 84 Year
  Sex: Male

DRUGS (7)
  1. DOCETAXEL [Suspect]
     Indication: METASTATIC NEOPLASM
     Route: 041
     Dates: start: 20030902, end: 20030902
  2. METHYLPREDNISOLONE 16MG TAB [Concomitant]
     Indication: ACUTE RESPIRATORY DISTRESS SYNDROME
     Dates: start: 20030922
  3. KYTRIL [Concomitant]
     Indication: ANTIEMETIC SUPPORTIVE CARE
     Route: 042
     Dates: start: 20030902, end: 20030902
  4. DECADRON [Concomitant]
     Indication: ANTIEMETIC SUPPORTIVE CARE
     Route: 042
     Dates: start: 20030902, end: 20030902
  5. FLUMARIN [Concomitant]
     Indication: PYREXIA
     Route: 042
     Dates: start: 20030902, end: 20030908
  6. ZOFRAN [Concomitant]
     Indication: ANTIEMETIC SUPPORTIVE CARE
     Route: 048
     Dates: start: 20030903, end: 20030904
  7. DALACIN-S [Concomitant]
     Indication: PYREXIA
     Route: 042
     Dates: start: 20030905, end: 20030908

REACTIONS (5)
  - ACUTE RESPIRATORY DISTRESS SYNDROME [None]
  - MALIGNANT NEOPLASM PROGRESSION [None]
  - METASTASES TO LUNG [None]
  - MULTI-ORGAN FAILURE [None]
  - PLEURAL EFFUSION [None]
